FAERS Safety Report 8928889 (Version 2)
Quarter: 2012Q4

REPORT INFORMATION
  Report Type: 
  Country: CA (occurrence: CA)
  Receive Date: 20121128
  Receipt Date: 20121218
  Transmission Date: 20130627
  Serious: Yes (Other)
  Sender: FDA-Public Use
  Company Number: CA-AMGEN-CANSP2012075446

PATIENT
  Age: 44 Year
  Sex: Female

DRUGS (1)
  1. VECTIBIX [Suspect]
     Indication: COLORECTAL CANCER METASTATIC
     Dosage: UNK UNK, q2wk
     Dates: start: 201201, end: 201203

REACTIONS (3)
  - Hyperthermia malignant [Unknown]
  - Pyrexia [Unknown]
  - Rash [Unknown]
